FAERS Safety Report 24942974 (Version 1)
Quarter: 2025Q1

REPORT INFORMATION
  Report Type: Other
  Country: CD (occurrence: CD)
  Receive Date: 20250207
  Receipt Date: 20250207
  Transmission Date: 20250409
  Serious: Yes (Life-Threatening)
  Sender: B BRAUN
  Company Number: CD-B.Braun Medical Inc.-2170663

PATIENT
  Age: 26 Year
  Sex: Male

DRUGS (4)
  1. HEPARIN SODIUM IN DEXTROSE [Suspect]
     Active Substance: HEPARIN SODIUM
     Indication: Myocardial infarction
  2. ASPIRIN [Suspect]
     Active Substance: ASPIRIN
  3. Crystalloid intravenous infusion [Concomitant]
  4. CLOPIDOGREL [Suspect]
     Active Substance: CLOPIDOGREL BISULFATE

REACTIONS (1)
  - Drug ineffective [Unknown]
